FAERS Safety Report 7631808-7 (Version None)
Quarter: 2011Q3

REPORT INFORMATION
  Report Type: 
  Country: None (occurrence: None)
  Receive Date: 20110725
  Receipt Date: 20110401
  Transmission Date: 20111222
  Serious: No
  Sender: FDA-Public Use
  Company Number: US-BRISTOL-MYERS SQUIBB COMPANY-15652415

PATIENT
  Age: 75 Year
  Sex: Female
  Weight: 63 kg

DRUGS (18)
  1. LANSOPRAZOLE [Concomitant]
  2. SURFAK [Concomitant]
  3. MIRALAX [Concomitant]
  4. VASOTEC [Concomitant]
  5. FEMARA [Concomitant]
  6. LEXAPRO [Concomitant]
  7. ZOMETA [Concomitant]
     Dosage: INJECTION
  8. VITAMIN B [Concomitant]
  9. ASCORBIC ACID [Concomitant]
  10. CELEBREX [Concomitant]
  11. MONTELUKAST SODIUM [Concomitant]
  12. FOLIC ACID [Concomitant]
  13. CARDIZEM [Concomitant]
  14. DIGOXIN [Concomitant]
  15. BUPROPION HCL [Concomitant]
  16. ADVAIR DISKUS 100/50 [Concomitant]
  17. COUMADIN [Suspect]
     Indication: ATRIAL FIBRILLATION
     Dosage: RECEIVED MORE THAN 5 YRS AGO STARTED AS 2MG AND INCREASED TO 2.5MG AND NOW ON 3MG
  18. PROPAFENONE HCL [Concomitant]

REACTIONS (1)
  - INTERNATIONAL NORMALISED RATIO ABNORMAL [None]
